FAERS Safety Report 4939077-3 (Version None)
Quarter: 2006Q1

REPORT INFORMATION
  Report Type: 
  Country: None (occurrence: None)
  Receive Date: 20060306
  Receipt Date: 20060223
  Transmission Date: 20060701
  Serious: Yes (Other)
  Sender: FDA-Public Use
  Company Number: 2006026347

PATIENT
  Age: 49 Year
  Sex: Female
  Weight: 78.0187 kg

DRUGS (1)
  1. LISTERINE ANTISEPTIC MOUTHWASH (MENTHOL, METHYL SALICYLATE, EUCALYPTOL [Suspect]
     Indication: DENTAL DISORDER PROPHYLAXIS
     Dosage: LESS THAN A CAPFUL ONCE OR TWIC DAILY, ORAL
     Route: 048
     Dates: start: 20060101, end: 20060101

REACTIONS (5)
  - ABDOMINAL PAIN UPPER [None]
  - ANOREXIA [None]
  - CHEST PAIN [None]
  - DEPRESSION [None]
  - MALAISE [None]
